FAERS Safety Report 6140181-5 (Version None)
Quarter: 2009Q2

REPORT INFORMATION
  Report Type: 
  Country: None (occurrence: None)
  Receive Date: 20090401
  Receipt Date: 20090326
  Transmission Date: 20091009
  Serious: Yes (Disabling)
  Sender: FDA-Public Use
  Company Number: NO-ALLERGAN-0904079US

PATIENT
  Sex: Female

DRUGS (3)
  1. BOTOX [Suspect]
     Indication: TENSION HEADACHE
     Dosage: 100 UNITS, SINGLE
     Route: 030
     Dates: start: 20080820, end: 20080820
  2. BOTOX [Suspect]
     Dosage: 60 UNITS, SINGLE
     Route: 030
     Dates: start: 20080430, end: 20080430
  3. BOTOX [Suspect]
     Dosage: 45 UNITS, SINGLE
     Route: 030
     Dates: start: 20080128, end: 20080128

REACTIONS (6)
  - DYSPHAGIA [None]
  - FATIGUE [None]
  - HEADACHE [None]
  - HYPOAESTHESIA [None]
  - MUSCULAR WEAKNESS [None]
  - MYALGIA [None]
